FAERS Safety Report 21305605 (Version 1)
Quarter: 2022Q3

REPORT INFORMATION
  Report Type: Spontaneous
  Country: US (occurrence: US)
  Receive Date: 20220908
  Receipt Date: 20220908
  Transmission Date: 20221027
  Serious: Yes (Other)
  Sender: FDA-Public Use
  Company Number: US-BRISTOL-MYERS SQUIBB COMPANY-2022-099030

PATIENT
  Age: 78 Year
  Sex: Female
  Weight: 0 kg

DRUGS (1)
  1. LENALIDOMIDE [Suspect]
     Active Substance: LENALIDOMIDE
     Indication: Product used for unknown indication
     Dosage: 3-5MG CAPSULES DAILY TO 2-5MG CAPSULES DAILY
     Route: 048
     Dates: start: 20220630

REACTIONS (2)
  - Thrombocytopenia [Unknown]
  - Off label use [Unknown]
